FAERS Safety Report 25026676 (Version 4)
Quarter: 2025Q4

REPORT INFORMATION
  Report Type: Spontaneous
  Country: US (occurrence: US)
  Receive Date: 20250301
  Receipt Date: 20251103
  Transmission Date: 20260118
  Serious: No
  Sender: SANOFI AVENTIS
  Company Number: US-SA-2025SA054294

PATIENT
  Age: 2 Year
  Sex: Male

DRUGS (2)
  1. DUPIXENT [Suspect]
     Active Substance: DUPILUMAB
     Indication: Asthma
     Dosage: 200 MG, Q4W
     Route: 058
     Dates: start: 20230814, end: 202411
  2. DUPIXENT [Suspect]
     Active Substance: DUPILUMAB
     Indication: Eczema
     Dosage: 200 MG, Q4W
     Route: 058
     Dates: start: 202501, end: 20250920

REACTIONS (14)
  - COVID-19 [Unknown]
  - Abdominal pain upper [Unknown]
  - Pyrexia [Unknown]
  - Ocular hyperaemia [Unknown]
  - Injection site mass [Unknown]
  - Injection site swelling [Unknown]
  - Respiratory syncytial virus infection [Recovering/Resolving]
  - Erythema [Recovered/Resolved]
  - Rash [Not Recovered/Not Resolved]
  - Eczema [Unknown]
  - Skin discolouration [Unknown]
  - Pruritus [Unknown]
  - Insomnia [Unknown]
  - Product dose omission issue [Unknown]

NARRATIVE: CASE EVENT DATE: 20230814
